FAERS Safety Report 14949703 (Version 4)
Quarter: 2019Q4

REPORT INFORMATION
  Report Type: Spontaneous
  Country: US (occurrence: US)
  Receive Date: 20180529
  Receipt Date: 20191204
  Transmission Date: 20200122
  Serious: Yes (Other)
  Sender: FDA-Public Use
  Company Number: US-AMGEN-USASP2018071982

PATIENT
  Sex: Female

DRUGS (1)
  1. ENBREL [Suspect]
     Active Substance: ETANERCEPT
     Indication: RHEUMATOID ARTHRITIS
     Dosage: UNK
     Route: 065
     Dates: start: 2004, end: 200806

REACTIONS (4)
  - Systemic lupus erythematosus [Unknown]
  - Drug hypersensitivity [Unknown]
  - Treatment failure [Unknown]
  - Lupus-like syndrome [Unknown]
